FAERS Safety Report 4714392-7 (Version None)
Quarter: 2005Q3

REPORT INFORMATION
  Report Type: 
  Country: None (occurrence: None)
  Receive Date: 20050714
  Receipt Date: 20050421
  Transmission Date: 20060218
  Serious: Yes (Other)
  Sender: FDA-Public Use
  Company Number: JP-GLAXOSMITHKLINE-B0378993A

PATIENT
  Age: 60 Year
  Sex: Male
  Weight: 70 kg

DRUGS (6)
  1. ZEFIX [Suspect]
     Indication: CHRONIC HEPATITIS
     Dosage: 100MG PER DAY
     Route: 048
     Dates: start: 20050224
  2. LOCHOL [Suspect]
     Dosage: 20MG PER DAY
     Route: 048
     Dates: start: 20000727
  3. PROHEPARUM [Concomitant]
     Indication: CHRONIC HEPATITIS
     Dosage: 300MG PER DAY
     Route: 048
     Dates: start: 20000727
  4. REPTOR [Concomitant]
     Indication: CHRONIC HEPATITIS
     Dosage: 150MG PER DAY
     Route: 048
     Dates: start: 20000727
  5. DAISAIKOTO [Concomitant]
     Indication: CHRONIC HEPATITIS
     Dosage: 6MG PER DAY
     Route: 048
     Dates: start: 20000727
  6. AMLODIN [Concomitant]
     Indication: HYPERTENSION
     Dosage: 5MG PER DAY
     Route: 048
     Dates: start: 20030508

REACTIONS (16)
  - ALANINE AMINOTRANSFERASE INCREASED [None]
  - ALPHA 1 FOETOPROTEIN INCREASED [None]
  - ANAEMIA [None]
  - ASPARTATE AMINOTRANSFERASE INCREASED [None]
  - BLOOD CREATINE PHOSPHOKINASE INCREASED [None]
  - BLOOD LACTATE DEHYDROGENASE INCREASED [None]
  - DECREASED APPETITE [None]
  - DIARRHOEA [None]
  - GAMMA-GLUTAMYLTRANSFERASE INCREASED [None]
  - HAEMOGLOBIN DECREASED [None]
  - HYPOAESTHESIA [None]
  - MYALGIA [None]
  - NAUSEA [None]
  - PLATELET COUNT DECREASED [None]
  - RED BLOOD CELL COUNT DECREASED [None]
  - RHABDOMYOLYSIS [None]
